FAERS Safety Report 8840065 (Version 2)
Quarter: 2012Q4

REPORT INFORMATION
  Report Type: 
  Country: US (occurrence: US)
  Receive Date: 20121015
  Receipt Date: 20121226
  Transmission Date: 20130627
  Serious: Yes (Other)
  Sender: FDA-Public Use
  Company Number: US-PFIZER INC-2012253985

PATIENT
  Sex: Female

DRUGS (1)
  1. LYRICA [Suspect]
     Dosage: UNK
     Dates: start: 20051001

REACTIONS (2)
  - Lymphoma [Unknown]
  - Fibromyalgia [Unknown]
